FAERS Safety Report 5311650-2 (Version None)
Quarter: 2007Q2

REPORT INFORMATION
  Report Type: 
  Country: None (occurrence: None)
  Receive Date: 20070430
  Receipt Date: 20060508
  Transmission Date: 20071010
  Serious: No
  Sender: FDA-Public Use
  Company Number: 2006UW08959

PATIENT
  Age: 60 Year
  Sex: Female

DRUGS (4)
  1. ZOMIG [Suspect]
     Indication: MIGRAINE
     Route: 048
  2. FLUOXETINE [Concomitant]
  3. NORTRIPTYLINE HCL [Concomitant]
  4. ALPRAZOLAM [Concomitant]

REACTIONS (1)
  - VOMITING [None]
